FAERS Safety Report 11197862 (Version 1)
Quarter: 2015Q2

REPORT INFORMATION
  Report Type: Spontaneous
  Country: US (occurrence: US)
  Receive Date: 20150617
  Receipt Date: 20150617
  Transmission Date: 20150821
  Serious: No
  Sender: FDA-Public Use
  Company Number: US-TAKEDA-2014TUS013361

PATIENT
  Age: 33 Year
  Sex: Female
  Weight: 71.66 kg

DRUGS (2)
  1. COBALAMIN [Concomitant]
     Active Substance: COBALAMIN
     Indication: VITAMIN SUPPLEMENTATION
     Dosage: UNKNOWN
     Route: 048
  2. ULORIC [Suspect]
     Active Substance: FEBUXOSTAT
     Indication: PRODUCT USED FOR UNKNOWN INDICATION
     Dosage: 80 MG (TABLET), UNK
     Route: 048
     Dates: start: 20141130, end: 20141130

REACTIONS (2)
  - Nausea [Recovered/Resolved]
  - Accidental exposure to product [Recovered/Resolved]

NARRATIVE: CASE EVENT DATE: 20141130
